FAERS Safety Report 17794104 (Version 1)
Quarter: 2020Q2

REPORT INFORMATION
  Report Type: Spontaneous
  Country: PT (occurrence: PT)
  Receive Date: 20200515
  Receipt Date: 20200515
  Transmission Date: 20200714
  Serious: Yes (Life-Threatening, Hospitalization, Other)
  Sender: FDA-Public Use
  Company Number: PT-MYLANLABS-2020M1047997

PATIENT
  Age: 4 Year
  Sex: Male

DRUGS (6)
  1. FLUCLOXACILLIN [Suspect]
     Active Substance: FLUCLOXACILLIN
     Indication: ARTHRITIS
     Dosage: 500 MILLIGRAM, Q6H
  2. METHOTREXATE. [Suspect]
     Active Substance: METHOTREXATE
     Indication: ARTHRITIS
     Dosage: MAINTAINING
     Route: 048
     Dates: start: 201204
  3. PREDNISOLONE. [Suspect]
     Active Substance: PREDNISOLONE
     Indication: ARTHRITIS
     Dosage: DEC-2012 RESTARTED PDN 0.3 MG/KG/DAY, MAINTAINED THE PDN 1 MG / KG / DAY SUSPEND 1.5 MONTHS LATER
     Dates: start: 201204
  4. METHYLPREDNISOLONE. [Suspect]
     Active Substance: METHYLPREDNISOLONE
     Indication: ARTHRITIS
     Dosage: 30 MILLIGRAM/KILOGRAM, QD
  5. ANAKINRA [Suspect]
     Active Substance: ANAKINRA
     Indication: ARTHRITIS
     Dosage: 2 MILLIGRAM/KILOGRAM, QD
  6. IBUPROFEN. [Suspect]
     Active Substance: IBUPROFEN
     Indication: ARTHRITIS
     Dosage: 40 MILLIGRAM/KILOGRAM, QD

REACTIONS (1)
  - Cardiac tamponade [Unknown]
